FAERS Safety Report 16502627 (Version 2)
Quarter: 2019Q3

REPORT INFORMATION
  Report Type: Spontaneous
  Country: US (occurrence: US)
  Receive Date: 20190701
  Receipt Date: 20190821
  Transmission Date: 20191004
  Serious: Yes (Hospitalization, Other)
  Sender: FDA-Public Use
  Company Number: US-009507513-1906USA009335

PATIENT
  Age: 22 Year
  Sex: Female
  Weight: 53.4 kg

DRUGS (2)
  1. NEXPLANON [Suspect]
     Active Substance: ETONOGESTREL
     Dosage: 1 ROD
     Route: 059
     Dates: start: 201706, end: 201906
  2. NEXPLANON [Suspect]
     Active Substance: ETONOGESTREL
     Indication: CONTRACEPTION
     Dosage: 1 ROD
     Route: 059
     Dates: start: 201406, end: 201706

REACTIONS (4)
  - Cerebral ischaemia [Unknown]
  - Jugular vein thrombosis [Unknown]
  - Transverse sinus thrombosis [Unknown]
  - Intracranial venous sinus thrombosis [Unknown]

NARRATIVE: CASE EVENT DATE: 20190620
